FAERS Safety Report 5748264-6 (Version None)
Quarter: 2008Q2

REPORT INFORMATION
  Report Type: 
  Country: None (occurrence: None)
  Receive Date: 20080523
  Receipt Date: 20080512
  Transmission Date: 20081010
  Serious: No
  Sender: FDA-Public Use
  Company Number: HU-PFIZER INC-2008037662

PATIENT

DRUGS (1)
  1. ALPROSTADIL SOLUTION, STERILE [Suspect]
     Indication: PATENT DUCTUS ARTERIOSUS

REACTIONS (1)
  - NO ADVERSE EVENT [None]
